FAERS Safety Report 24571600 (Version 1)
Quarter: 2024Q4

REPORT INFORMATION
  Report Type: Spontaneous
  Country: GB (occurrence: GB)
  Receive Date: 20241101
  Receipt Date: 20241101
  Transmission Date: 20250115
  Serious: Yes (Other)
  Sender: AUROBINDO
  Company Number: GB-MHRA-MED-202410201903400750-HDNKB

PATIENT
  Age: 2 Year
  Sex: Female

DRUGS (1)
  1. MONTELUKAST [Suspect]
     Active Substance: MONTELUKAST
     Indication: Bronchial hyperreactivity
     Dosage: 4 MILLIGRAM, AT BED TIME
     Route: 065
     Dates: start: 20241014

REACTIONS (1)
  - Mood altered [Not Recovered/Not Resolved]

NARRATIVE: CASE EVENT DATE: 20241018
